FAERS Safety Report 8777594 (Version 3)
Quarter: 2013Q1

REPORT INFORMATION
  Report Type: Spontaneous
  Country: CO (occurrence: CO)
  Receive Date: 20120910
  Receipt Date: 20130312
  Transmission Date: 20140127
  Serious: Yes (Other)
  Sender: FDA-Public Use
  Company Number: CO-ELI_LILLY_AND_COMPANY-CO201209001211

PATIENT
  Age: 66 Year
  Sex: Female

DRUGS (8)
  1. FORTEO [Suspect]
     Indication: OSTEOPOROSIS
     Dosage: 20 UG, QD
     Route: 058
     Dates: start: 20120816, end: 20121204
  2. CHONDROITIN SULFATE W/GLUCOSAMINE [Concomitant]
     Dosage: UNK, QD
  3. BIOTIN [Concomitant]
     Dosage: 5000 UG, QD
  4. BETALOC [Concomitant]
     Dosage: 50 MG, QD
  5. TRAMAL [Concomitant]
     Indication: PAIN
  6. LEVOTHYROXINE [Concomitant]
     Dosage: 75 MG, UNK
  7. CALCITRIOL [Concomitant]
     Dosage: 0.25 UG, QD
  8. THIAMINE [Concomitant]

REACTIONS (8)
  - Rash [Recovered/Resolved]
  - Pruritus [Recovering/Resolving]
  - Feeling abnormal [Recovering/Resolving]
  - Hyperhidrosis [Not Recovered/Not Resolved]
  - Pain [Not Recovered/Not Resolved]
  - Cyst [Not Recovered/Not Resolved]
  - Gastritis [Not Recovered/Not Resolved]
  - Pain [Not Recovered/Not Resolved]
